FAERS Safety Report 7017547-4 (Version None)
Quarter: 2010Q3

REPORT INFORMATION
  Report Type: 
  Country: None (occurrence: None)
  Receive Date: 20100928
  Receipt Date: 20100604
  Transmission Date: 20110219
  Serious: No
  Sender: FDA-Public Use
  Company Number: US-MYLANLABS-2010S1005727

PATIENT
  Age: 61 Year
  Sex: Female

DRUGS (12)
  1. CARBIDOPA AND LEVODOPA TABLETS USP [Suspect]
     Indication: PARKINSON'S DISEASE
     Route: 048
     Dates: start: 20100324, end: 20100401
  2. CARBIDOPA AND LEVODOPA TABLETS USP [Suspect]
     Route: 048
     Dates: start: 20100324, end: 20100401
  3. CARBIDOPA AND LEVODOPA TABLETS USP [Suspect]
     Route: 048
     Dates: start: 20100324, end: 20100401
  4. CARBIDOPA AND LEVODOPA TABLETS USP [Suspect]
     Route: 048
     Dates: start: 20100324, end: 20100401
  5. CARBIDOPA AND LEVODOPA TABLETS USP [Suspect]
     Route: 048
     Dates: start: 20100324, end: 20100401
  6. CARBIDOPA AND LEVODOPA TABLETS USP [Suspect]
     Route: 048
     Dates: start: 20100324, end: 20100401
  7. COMTAN [Concomitant]
     Indication: PARKINSON'S DISEASE
     Route: 048
  8. LITHIUM [Concomitant]
     Indication: BIPOLAR DISORDER
     Route: 048
  9. TEMAZEPAM [Concomitant]
     Indication: INSOMNIA
     Route: 048
  10. TRAZODONE HCL [Concomitant]
     Indication: INSOMNIA
     Dosage: 150 TO 300 MG AS NEEDED
     Route: 048
  11. TRAZODONE HCL [Concomitant]
     Dosage: 150 TO 300 MG AS NEEDED
     Route: 048
  12. NAPROXEN [Concomitant]
     Indication: ARTHRALGIA

REACTIONS (8)
  - DRUG INEFFECTIVE [None]
  - HYPERKINESIA [None]
  - MALAISE [None]
  - MUSCULOSKELETAL STIFFNESS [None]
  - SPEECH DISORDER [None]
  - TREMOR [None]
  - VISUAL IMPAIRMENT [None]
  - VOMITING [None]
